FAERS Safety Report 17091357 (Version 1)
Quarter: 2019Q4

REPORT INFORMATION
  Report Type: Spontaneous
  Country: US (occurrence: US)
  Receive Date: 20191031
  Receipt Date: 20191031
  Transmission Date: 20200122
  Serious: Yes (Hospitalization)
  Sender: FDA-Public Use
  Company Number: None

PATIENT
  Age: 54 Year
  Sex: Male
  Weight: 151.95 kg

DRUGS (1)
  1. AMOXICILLIN/CLAVULANATE [Suspect]
     Active Substance: AMOXICILLIN\CLAVULANATE POTASSIUM
     Indication: SKIN INFECTION
     Dosage: 1 TAB BID PO
     Route: 048
     Dates: start: 20190319, end: 20190327

REACTIONS (5)
  - Rash [None]
  - Diarrhoea [None]
  - Nausea [None]
  - Nephritis [None]
  - Vomiting [None]

NARRATIVE: CASE EVENT DATE: 20190327
